FAERS Safety Report 5096278-4 (Version None)
Quarter: 2006Q3

REPORT INFORMATION
  Report Type: 
  Country: None (occurrence: None)
  Receive Date: 20060831
  Receipt Date: 20060823
  Transmission Date: 20061208
  Serious: Yes (Other)
  Sender: FDA-Public Use
  Company Number: 2006102818

PATIENT
  Sex: Male

DRUGS (1)
  1. BENADRYL [Suspect]
     Indication: INSOMNIA
     Dosage: 10 TO 25, 25 MG TABLETS NIGHTLY, ORAL
     Route: 048

REACTIONS (1)
  - DRUG DEPENDENCE [None]
